FAERS Safety Report 9260883 (Version 1)
Quarter: 2013Q2

REPORT INFORMATION
  Report Type: Spontaneous
  Country: US (occurrence: US)
  Receive Date: 20130429
  Receipt Date: 20130429
  Transmission Date: 20140414
  Serious: No
  Sender: FDA-Public Use
  Company Number: US-AMGEN-USASP2012021793

PATIENT
  Age: 50 Year
  Sex: Male

DRUGS (5)
  1. SENSIPAR [Suspect]
     Indication: BLOOD PARATHYROID HORMONE INCREASED
     Dosage: 60 MG, QD
     Dates: start: 201111
  2. AMBIEN [Concomitant]
     Dosage: UNK
  3. NORVASC [Concomitant]
     Dosage: UNK
  4. METOPROLOL [Concomitant]
     Dosage: UNK
  5. DIOVAN [Concomitant]
     Dosage: UNK

REACTIONS (2)
  - Anxiety [Not Recovered/Not Resolved]
  - Blood parathyroid hormone increased [Not Recovered/Not Resolved]
